FAERS Safety Report 8836791 (Version 1)
Quarter: 2012Q4

REPORT INFORMATION
  Report Type: 
  Country: TR (occurrence: TR)
  Receive Date: 20121012
  Receipt Date: 20121012
  Transmission Date: 20130627
  Serious: Yes (Hospitalization)
  Sender: FDA-Public Use
  Company Number: TR-ROXANE LABORATORIES, INC.-2012-RO-01985RO

PATIENT
  Age: 20 Year
  Sex: Male

DRUGS (1)
  1. CITALOPRAM [Suspect]
     Indication: ANXIETY DISORDER
     Dosage: 400 mg

REACTIONS (3)
  - Arrhythmia supraventricular [Recovered/Resolved]
  - Sinus arrhythmia [Recovered/Resolved]
  - Suicide attempt [Recovered/Resolved]
